FAERS Safety Report 20855423 (Version 2)
Quarter: 2022Q2

REPORT INFORMATION
  Report Type: Spontaneous
  Country: US (occurrence: US)
  Receive Date: 20220520
  Receipt Date: 20220601
  Transmission Date: 20220721
  Serious: No
  Sender: FDA-Public Use
  Company Number: US-VERTEX PHARMACEUTICALS-2022-006823

PATIENT
  Age: 24 Year
  Sex: Female
  Weight: 55 kg

DRUGS (7)
  1. TRIKAFTA [Suspect]
     Active Substance: ELEXACAFTOR\IVACAFTOR\TEZACAFTOR
     Indication: Cystic fibrosis
     Dosage: STANDARD ADULT DOSE
     Route: 048
     Dates: start: 202107
  2. HUMALOG [Concomitant]
     Active Substance: INSULIN LISPRO
     Indication: Cystic fibrosis related diabetes
     Dosage: CR 1: 50, 1:70 ABOVE 150
  3. LANTUS [Concomitant]
     Active Substance: INSULIN GLARGINE
     Indication: Cystic fibrosis related diabetes
     Dosage: 2 UNITS SQ DAILY
     Route: 058
  4. CITALOPRAM [Concomitant]
     Active Substance: CITALOPRAM HYDROBROMIDE
     Indication: Depression
     Dosage: 10 MG DAILY
  5. PERTZYE [Concomitant]
     Active Substance: PANCRELIPASE AMYLASE\PANCRELIPASE LIPASE\PANCRELIPASE PROTEASE
     Indication: Pancreatic failure
     Dosage: 24000 UNITS CAPS WITH MEAL
  6. PULMOZYME [Concomitant]
     Active Substance: DORNASE ALFA
     Dosage: UNK, BID
  7. ALBUTEROL [Concomitant]
     Active Substance: ALBUTEROL

REACTIONS (3)
  - Exposure during pregnancy [Unknown]
  - Pre-eclampsia [Recovered/Resolved]
  - Gestational hypertension [Unknown]

NARRATIVE: CASE EVENT DATE: 20220202
